FAERS Safety Report 16338398 (Version 1)
Quarter: 2019Q2

REPORT INFORMATION
  Report Type: Spontaneous
  Country: IT (occurrence: IT)
  Receive Date: 20190521
  Receipt Date: 20190521
  Transmission Date: 20190711
  Serious: Yes (Hospitalization)
  Sender: FDA-Public Use
  Company Number: IT-DSJP-DSE-2019-117643

PATIENT

DRUGS (12)
  1. DIGITALIS [Concomitant]
     Active Substance: DIGITALIS
     Indication: PRODUCT USED FOR UNKNOWN INDICATION
     Dosage: UNK
  2. EDOXABAN [Suspect]
     Active Substance: EDOXABAN TOSYLATE
     Indication: ATRIAL FIBRILLATION
     Dosage: 30 MG, QD
     Route: 048
  3. ELBASVIR W/GRAZOPREVIR [Concomitant]
     Active Substance: ELBASVIR\GRAZOPREVIR
     Indication: PRODUCT USED FOR UNKNOWN INDICATION
  4. ALDOSTERONE ANTAGONISTS [Concomitant]
     Indication: PRODUCT USED FOR UNKNOWN INDICATION
     Dosage: UNK
  5. PROTON PUMP INHIBITORS [Concomitant]
     Active Substance: UNSPECIFIED INGREDIENT
     Indication: PRODUCT USED FOR UNKNOWN INDICATION
     Dosage: UNK
  6. BETA BLOCKING AGENTS [Concomitant]
     Active Substance: UNSPECIFIED INGREDIENT
     Indication: PRODUCT USED FOR UNKNOWN INDICATION
     Dosage: UNK
  7. DIGOXIN. [Concomitant]
     Active Substance: DIGOXIN
     Indication: PRODUCT USED FOR UNKNOWN INDICATION
     Dosage: UNK
  8. ACETYLSALICYLIC ACID [Concomitant]
     Active Substance: ASPIRIN
     Indication: ANGIOPATHY
     Dosage: 100 MG
  9. LOW MOLECULAR WEIGHT HEPARIN [Concomitant]
     Active Substance: UNSPECIFIED INGREDIENT
     Indication: PRODUCT USED FOR UNKNOWN INDICATION
     Dosage: UNK
  10. FUROSEMIDE. [Concomitant]
     Active Substance: FUROSEMIDE
     Indication: PRODUCT USED FOR UNKNOWN INDICATION
     Dosage: UNK
  11. EDOXABAN [Suspect]
     Active Substance: EDOXABAN TOSYLATE
     Dosage: 30 MG, QD
     Route: 048
     Dates: start: 201903
  12. URSODEOXYCHOLIC ACID [Concomitant]
     Active Substance: URSODIOL
     Indication: PRODUCT USED FOR UNKNOWN INDICATION
     Dosage: UNK

REACTIONS (13)
  - Presyncope [Unknown]
  - Atrioventricular block complete [Unknown]
  - Bundle branch block left [Unknown]
  - Atrioventricular block second degree [Unknown]
  - Bundle branch block right [Unknown]
  - Atrioventricular block first degree [Unknown]
  - Dyspnoea [Unknown]
  - Bradycardia [Unknown]
  - Confusional state [Unknown]
  - Peritonitis bacterial [Unknown]
  - Weight increased [Unknown]
  - Haemoglobin decreased [Unknown]
  - Gravitational oedema [Recovering/Resolving]

NARRATIVE: CASE EVENT DATE: 201810
